FAERS Safety Report 15537062 (Version 1)
Quarter: 2018Q4

REPORT INFORMATION
  Report Type: Spontaneous
  Country: KR (occurrence: KR)
  Receive Date: 20181022
  Receipt Date: 20181022
  Transmission Date: 20190205
  Serious: Yes (Hospitalization)
  Sender: FDA-Public Use
  Company Number: KR-MYLANLABS-2018M1076766

PATIENT
  Sex: Female

DRUGS (2)
  1. METHIMAZOLE. [Suspect]
     Active Substance: METHIMAZOLE
     Dosage: 50 MG, QD, THIAMAZOLE WAS GRADUALLY INCREASED BY THE END OF 2016
     Route: 065
     Dates: start: 2016
  2. METHIMAZOLE. [Suspect]
     Active Substance: METHIMAZOLE
     Indication: THYROID THERAPY
     Dosage: 20 MG, QD, THEREAFTER INCREASED
     Route: 065

REACTIONS (6)
  - Weight increased [Recovering/Resolving]
  - Pericardial effusion [Recovering/Resolving]
  - Generalised oedema [Recovering/Resolving]
  - Atelectasis [Recovering/Resolving]
  - Pleural effusion [Recovering/Resolving]
  - Hypothyroidism [Recovering/Resolving]

NARRATIVE: CASE EVENT DATE: 201703
